FAERS Safety Report 5025243-8 (Version None)
Quarter: 2006Q2

REPORT INFORMATION
  Report Type: 
  Country: None (occurrence: None)
  Receive Date: 20060608
  Receipt Date: 20060608
  Transmission Date: 20061013
  Serious: Yes (Other)
  Sender: FDA-Public Use
  Company Number: None

PATIENT
  Age: 49 Year
  Sex: Female
  Weight: 49.8957 kg

DRUGS (1)
  1. KETEK [Suspect]
     Indication: SINUSITIS
     Dosage: 1 TABLET EVERY DAY MOUTH
     Route: 048
     Dates: start: 20050801, end: 20050805

REACTIONS (4)
  - ABNORMAL FAECES [None]
  - FAECES PALE [None]
  - REFLUX OESOPHAGITIS [None]
  - WEIGHT DECREASED [None]
